FAERS Safety Report 9832573 (Version 2)
Quarter: 2014Q1

REPORT INFORMATION
  Report Type: Spontaneous
  Country: CH (occurrence: CH)
  Receive Date: 20140121
  Receipt Date: 20140221
  Transmission Date: 20141002
  Serious: Yes (Death, Hospitalization, Other)
  Sender: FDA-Public Use
  Company Number: CH-PFIZER INC-2014013555

PATIENT
  Age: 64 Year
  Sex: Female
  Weight: 49.6 kg

DRUGS (24)
  1. SUTENT [Suspect]
     Indication: GASTROINTESTINAL STROMAL TUMOUR
     Dosage: 50 MG, DAILY
     Route: 048
     Dates: start: 201203, end: 201203
  2. STIVARGA [Suspect]
     Indication: GASTROINTESTINAL STROMAL TUMOUR
     Dosage: DOSAGE REGIMEN VARIED BETWEEN 40 MG AND 120 MG PER DAY
     Route: 048
     Dates: start: 20130703, end: 20130918
  3. STIVARGA [Suspect]
     Dosage: 40 MG, DAILY
     Route: 048
     Dates: start: 20131030
  4. STIVARGA [Suspect]
     Dosage: 80 MG, DAILY
     Route: 048
     Dates: end: 20131227
  5. GLIVEC [Suspect]
     Indication: GASTROINTESTINAL STROMAL TUMOUR
     Dosage: UNK
     Dates: start: 200612, end: 201105
  6. GLIVEC [Suspect]
     Dosage: UNK
     Dates: start: 201110, end: 201111
  7. GLIVEC [Suspect]
     Dosage: DOSE REDUCE BETWEEN 100 MG AND 400 MG PER DAY
  8. GLIVEC [Suspect]
     Dosage: UNK
     Dates: end: 201202
  9. GLIVEC [Suspect]
     Dosage: UNK
     Dates: end: 2013
  10. METOLAZONE [Concomitant]
     Dosage: 5 MG, 1X/DAY
     Route: 048
  11. LASIX [Concomitant]
     Dosage: 250 MG, 2X/DAY
     Route: 048
  12. MARCOUMAR [Concomitant]
     Dosage: 3 MG, AS NEEDED (DOSAGE REGIMEN DEPENDING ON INR)
     Route: 048
  13. IMODIUM [Concomitant]
     Dosage: 2 MG, 2X/DAY AS NEEDED
     Route: 048
  14. PANTOZOL [Concomitant]
     Dosage: 40 MG, 2X/DAY
     Route: 048
  15. ROCALTROL [Concomitant]
     Dosage: 0.25 UG, 3 TIMES PER WEEK
     Route: 048
  16. ARANESP [Concomitant]
     Dosage: 60 UG, EVERY 10 DAYS
     Route: 058
  17. BECOZYME FORTE [Concomitant]
     Dosage: 1 DF, 1X/DAY
     Route: 048
  18. CREON [Concomitant]
     Dosage: 120000 IU, 3X/DAY
     Route: 048
  19. SUPRADYN [Concomitant]
     Dosage: 1 DF, 1X/DAY
     Route: 048
  20. BUSCOPAN [Concomitant]
     Dosage: 10 MG, AS NEEDED
  21. DUROGESIC [Concomitant]
     Dosage: 1 DF (1 DF = 12UG/H), EVERY 3 DAYS
     Route: 062
  22. ZOFRAN [Concomitant]
     Dosage: 4 MG, AS NEEDED
     Route: 060
  23. DAFALGAN [Concomitant]
     Dosage: UNK
  24. HALDOL [Concomitant]
     Dosage: UNK
     Dates: start: 201309, end: 201312

REACTIONS (15)
  - Disease progression [Fatal]
  - Gastrointestinal stromal tumour [Fatal]
  - Renal failure chronic [Fatal]
  - Diarrhoea [Not Recovered/Not Resolved]
  - Vertigo [Recovered/Resolved]
  - Nausea [Not Recovered/Not Resolved]
  - Vomiting [Not Recovered/Not Resolved]
  - Abdominal pain [Not Recovered/Not Resolved]
  - Back pain [Not Recovered/Not Resolved]
  - Second primary malignancy [Recovered/Resolved]
  - Squamous cell carcinoma [Recovered/Resolved]
  - General physical health deterioration [Unknown]
  - Pain [Unknown]
  - Gastrointestinal disorder [Unknown]
  - Sepsis [Unknown]
